FAERS Safety Report 5907061-9 (Version None)
Quarter: 2008Q4

REPORT INFORMATION
  Report Type: 
  Country: None (occurrence: None)
  Receive Date: 20081002
  Receipt Date: 20081002
  Transmission Date: 20090506
  Serious: Yes (Other)
  Sender: FDA-Public Use
  Company Number: None

PATIENT
  Age: 26 Year
  Sex: Female
  Weight: 104.3273 kg

DRUGS (1)
  1. CLARITHROMYCIN [Suspect]
     Indication: SINUSITIS
     Dosage: 500MG
     Dates: start: 20080926, end: 20080930

REACTIONS (5)
  - ABDOMINAL PAIN [None]
  - DYSGEUSIA [None]
  - HALLUCINATION [None]
  - SWELLING [None]
  - VERTIGO [None]
